FAERS Safety Report 5108856-4 (Version None)
Quarter: 2006Q3

REPORT INFORMATION
  Report Type: 
  Country: None (occurrence: None)
  Receive Date: 20060918
  Receipt Date: 20060829
  Transmission Date: 20061208
  Serious: Yes (Hospitalization)
  Sender: FDA-Public Use
  Company Number: US200608006654

PATIENT
  Age: 59 Year
  Sex: Female

DRUGS (3)
  1. CYMBALTA [Suspect]
     Indication: PROPHYLAXIS
     Dosage: 60 MG
     Dates: start: 20060101, end: 20060829
  2. PLAVIX [Concomitant]
  3. ULTRAM [Concomitant]

REACTIONS (10)
  - DECREASED APPETITE [None]
  - HALLUCINATION [None]
  - HYPOTONIA [None]
  - NAUSEA [None]
  - NIGHTMARE [None]
  - PERIPHERAL EMBOLISM [None]
  - PRURITUS [None]
  - TREMOR [None]
  - VOMITING [None]
  - WEIGHT DECREASED [None]
